FAERS Safety Report 21784462 (Version 8)
Quarter: 2025Q1

REPORT INFORMATION
  Report Type: Spontaneous
  Country: CA (occurrence: None)
  Receive Date: 20221227
  Receipt Date: 20250327
  Transmission Date: 20250409
  Serious: Yes (Death, Life-Threatening, Hospitalization, Disabling, Other)
  Sender: ORION
  Company Number: CA-AMGEN-CANSP2021049230

PATIENT
  Age: 48 Year
  Sex: Female
  Weight: 68 kg

DRUGS (226)
  1. METHOTREXATE [Suspect]
     Active Substance: METHOTREXATE
     Indication: Rheumatoid arthritis
  2. METHOTREXATE [Suspect]
     Active Substance: METHOTREXATE
  3. METHOTREXATE [Suspect]
     Active Substance: METHOTREXATE
  4. METHOTREXATE [Suspect]
     Active Substance: METHOTREXATE
  5. METHOTREXATE [Suspect]
     Active Substance: METHOTREXATE
  6. METHOTREXATE [Suspect]
     Active Substance: METHOTREXATE
  7. METHOTREXATE [Suspect]
     Active Substance: METHOTREXATE
  8. METHOTREXATE [Suspect]
     Active Substance: METHOTREXATE
  9. METHOTREXATE [Suspect]
     Active Substance: METHOTREXATE
  10. METHOTREXATE [Suspect]
     Active Substance: METHOTREXATE
  11. METHOTREXATE [Suspect]
     Active Substance: METHOTREXATE
  12. METHOTREXATE [Suspect]
     Active Substance: METHOTREXATE
  13. METHOTREXATE [Suspect]
     Active Substance: METHOTREXATE
  14. METHOTREXATE [Suspect]
     Active Substance: METHOTREXATE
  15. METHOTREXATE [Suspect]
     Active Substance: METHOTREXATE
  16. METHOTREXATE [Suspect]
     Active Substance: METHOTREXATE
  17. METHOTREXATE [Suspect]
     Active Substance: METHOTREXATE
  18. METHOTREXATE [Suspect]
     Active Substance: METHOTREXATE
  19. METHOTREXATE [Suspect]
     Active Substance: METHOTREXATE
  20. METHOTREXATE [Suspect]
     Active Substance: METHOTREXATE
  21. METHOTREXATE [Suspect]
     Active Substance: METHOTREXATE
  22. METHOTREXATE [Suspect]
     Active Substance: METHOTREXATE
  23. METHOTREXATE [Suspect]
     Active Substance: METHOTREXATE
  24. METHOTREXATE [Suspect]
     Active Substance: METHOTREXATE
  25. METHOTREXATE [Suspect]
     Active Substance: METHOTREXATE
  26. METHOTREXATE [Suspect]
     Active Substance: METHOTREXATE
  27. METHOTREXATE [Suspect]
     Active Substance: METHOTREXATE
  28. METHOTREXATE [Suspect]
     Active Substance: METHOTREXATE
  29. METHOTREXATE [Suspect]
     Active Substance: METHOTREXATE
  30. METHOTREXATE [Suspect]
     Active Substance: METHOTREXATE
  31. METHOTREXATE [Suspect]
     Active Substance: METHOTREXATE
  32. METHOTREXATE [Suspect]
     Active Substance: METHOTREXATE
  33. METHOTREXATE [Suspect]
     Active Substance: METHOTREXATE
  34. METHOTREXATE [Suspect]
     Active Substance: METHOTREXATE
  35. METHOTREXATE [Suspect]
     Active Substance: METHOTREXATE
  36. METHOTREXATE [Suspect]
     Active Substance: METHOTREXATE
  37. METHOTREXATE [Suspect]
     Active Substance: METHOTREXATE
  38. PANTOPRAZOLE [Suspect]
     Active Substance: PANTOPRAZOLE
     Indication: Dyspepsia
  39. RITUXIMAB [Suspect]
     Active Substance: RITUXIMAB
     Indication: Rheumatoid arthritis
  40. RITUXIMAB [Suspect]
     Active Substance: RITUXIMAB
  41. RITUXIMAB [Suspect]
     Active Substance: RITUXIMAB
  42. RITUXIMAB [Suspect]
     Active Substance: RITUXIMAB
  43. RITUXIMAB [Suspect]
     Active Substance: RITUXIMAB
  44. RITUXIMAB [Suspect]
     Active Substance: RITUXIMAB
  45. ADALIMUMAB [Suspect]
     Active Substance: ADALIMUMAB
     Indication: Rheumatoid arthritis
  46. ADALIMUMAB [Suspect]
     Active Substance: ADALIMUMAB
  47. ADALIMUMAB [Suspect]
     Active Substance: ADALIMUMAB
  48. DICLOFENAC [Suspect]
     Active Substance: DICLOFENAC
     Indication: Product used for unknown indication
  49. DICLOFENAC [Suspect]
     Active Substance: DICLOFENAC
  50. DICLOFENAC [Suspect]
     Active Substance: DICLOFENAC
  51. DICLOFENAC [Suspect]
     Active Substance: DICLOFENAC
  52. DICLOFENAC [Suspect]
     Active Substance: DICLOFENAC
  53. DICLOFENAC [Suspect]
     Active Substance: DICLOFENAC
  54. DICLOFENAC [Suspect]
     Active Substance: DICLOFENAC
  55. DICLOFENAC [Suspect]
     Active Substance: DICLOFENAC
  56. ALENDRONIC ACID [Suspect]
     Active Substance: ALENDRONIC ACID
     Indication: Rheumatoid arthritis
  57. ALENDRONIC ACID [Suspect]
     Active Substance: ALENDRONIC ACID
  58. ALENDRONIC ACID [Suspect]
     Active Substance: ALENDRONIC ACID
  59. ALENDRONIC ACID [Suspect]
     Active Substance: ALENDRONIC ACID
  60. ALENDRONIC ACID [Suspect]
     Active Substance: ALENDRONIC ACID
  61. ALENDRONIC ACID [Suspect]
     Active Substance: ALENDRONIC ACID
  62. AZATHIOPRINE [Suspect]
     Active Substance: AZATHIOPRINE
     Indication: Product used for unknown indication
  63. COSENTYX [Suspect]
     Active Substance: SECUKINUMAB
     Indication: Rheumatoid arthritis
  64. COSENTYX [Suspect]
     Active Substance: SECUKINUMAB
  65. COSENTYX [Suspect]
     Active Substance: SECUKINUMAB
  66. ERELZI [Suspect]
     Active Substance: ETANERCEPT-SZZS
     Indication: Rheumatoid arthritis
  67. ERELZI [Suspect]
     Active Substance: ETANERCEPT-SZZS
  68. ERELZI [Suspect]
     Active Substance: ETANERCEPT-SZZS
  69. ERELZI [Suspect]
     Active Substance: ETANERCEPT-SZZS
  70. ERELZI [Suspect]
     Active Substance: ETANERCEPT-SZZS
  71. IBUPROFEN [Suspect]
     Active Substance: IBUPROFEN
     Indication: Product used for unknown indication
  72. DICLOFENAC POTASSIUM [Suspect]
     Active Substance: DICLOFENAC POTASSIUM
     Indication: Product used for unknown indication
  73. SECUKINUMAB [Suspect]
     Active Substance: SECUKINUMAB
     Indication: Product used for unknown indication
  74. ENBREL [Suspect]
     Active Substance: ETANERCEPT
     Indication: Rheumatoid arthritis
  75. ENBREL [Suspect]
     Active Substance: ETANERCEPT
  76. SOLU-MEDROL [Suspect]
     Active Substance: METHYLPREDNISOLONE SODIUM SUCCINATE
     Indication: Product used for unknown indication
  77. SULFASALAZINE [Suspect]
     Active Substance: SULFASALAZINE
     Indication: Rheumatoid arthritis
  78. SULFASALAZINE [Suspect]
     Active Substance: SULFASALAZINE
  79. SULFASALAZINE [Suspect]
     Active Substance: SULFASALAZINE
  80. SULFASALAZINE [Suspect]
     Active Substance: SULFASALAZINE
  81. SULFASALAZINE [Suspect]
     Active Substance: SULFASALAZINE
  82. XELJANZ [Suspect]
     Active Substance: TOFACITINIB CITRATE
     Indication: Rheumatoid arthritis
  83. XELJANZ [Suspect]
     Active Substance: TOFACITINIB CITRATE
  84. XELJANZ [Suspect]
     Active Substance: TOFACITINIB CITRATE
  85. XELJANZ [Suspect]
     Active Substance: TOFACITINIB CITRATE
  86. ACETAMINOPHEN [Suspect]
     Active Substance: ACETAMINOPHEN
     Indication: Product used for unknown indication
  87. FOLIC ACID [Suspect]
     Active Substance: FOLIC ACID
     Indication: Rheumatoid arthritis
  88. FOLIC ACID [Suspect]
     Active Substance: FOLIC ACID
  89. FOLIC ACID [Suspect]
     Active Substance: FOLIC ACID
  90. FOLIC ACID [Suspect]
     Active Substance: FOLIC ACID
  91. FOLIC ACID [Suspect]
     Active Substance: FOLIC ACID
  92. FOLIC ACID [Suspect]
     Active Substance: FOLIC ACID
  93. FOLIC ACID [Suspect]
     Active Substance: FOLIC ACID
  94. FOLIC ACID [Suspect]
     Active Substance: FOLIC ACID
  95. ACTEMRA [Suspect]
     Active Substance: TOCILIZUMAB
     Indication: Rheumatoid arthritis
  96. ACTEMRA [Suspect]
     Active Substance: TOCILIZUMAB
  97. ACTEMRA [Suspect]
     Active Substance: TOCILIZUMAB
  98. ALENDRONATE SODIUM [Suspect]
     Active Substance: ALENDRONATE SODIUM
     Indication: Rheumatoid arthritis
  99. ALENDRONATE SODIUM [Suspect]
     Active Substance: ALENDRONATE SODIUM
  100. ALENDRONATE SODIUM [Suspect]
     Active Substance: ALENDRONATE SODIUM
  101. ALENDRONATE SODIUM [Suspect]
     Active Substance: ALENDRONATE SODIUM
     Indication: Rheumatoid arthritis
  102. PREDNISONE [Suspect]
     Active Substance: PREDNISONE
     Indication: Product used for unknown indication
  103. PREDNISONE [Suspect]
     Active Substance: PREDNISONE
  104. ARAVA [Suspect]
     Active Substance: LEFLUNOMIDE
     Indication: Rheumatoid arthritis
  105. ARAVA [Suspect]
     Active Substance: LEFLUNOMIDE
  106. ARAVA [Suspect]
     Active Substance: LEFLUNOMIDE
  107. ARAVA [Suspect]
     Active Substance: LEFLUNOMIDE
  108. CETIRIZINE HYDROCHLORIDE [Suspect]
     Active Substance: CETIRIZINE HYDROCHLORIDE
     Indication: Rheumatoid arthritis
  109. CETIRIZINE HYDROCHLORIDE [Suspect]
     Active Substance: CETIRIZINE HYDROCHLORIDE
  110. CETIRIZINE HYDROCHLORIDE\PSEUDOEPHEDRINE HYDROCHLORIDE [Suspect]
     Active Substance: CETIRIZINE HYDROCHLORIDE\PSEUDOEPHEDRINE HYDROCHLORIDE
     Indication: Rheumatoid arthritis
  111. CETIRIZINE HYDROCHLORIDE\PSEUDOEPHEDRINE HYDROCHLORIDE [Suspect]
     Active Substance: CETIRIZINE HYDROCHLORIDE\PSEUDOEPHEDRINE HYDROCHLORIDE
  112. CETIRIZINE HYDROCHLORIDE\PSEUDOEPHEDRINE HYDROCHLORIDE [Suspect]
     Active Substance: CETIRIZINE HYDROCHLORIDE\PSEUDOEPHEDRINE HYDROCHLORIDE
  113. CIMZIA [Suspect]
     Active Substance: CERTOLIZUMAB PEGOL
     Indication: Rheumatoid arthritis
  114. CIMZIA [Suspect]
     Active Substance: CERTOLIZUMAB PEGOL
  115. CIMZIA [Suspect]
     Active Substance: CERTOLIZUMAB PEGOL
  116. CORTISONE ACETATE [Suspect]
     Active Substance: CORTISONE ACETATE
     Indication: Rheumatoid arthritis
  117. CORTISONE ACETATE [Suspect]
     Active Substance: CORTISONE ACETATE
  118. CORTISONE ACETATE [Suspect]
     Active Substance: CORTISONE ACETATE
  119. CORTISONE ACETATE [Suspect]
     Active Substance: CORTISONE ACETATE
  120. CORTISONE ACETATE [Suspect]
     Active Substance: CORTISONE ACETATE
  121. CORTISONE ACETATE [Suspect]
     Active Substance: CORTISONE ACETATE
  122. DICLOFENAC [Suspect]
     Active Substance: DICLOFENAC
     Indication: Product used for unknown indication
  123. DICLOFENAC SODIUM [Suspect]
     Active Substance: DICLOFENAC SODIUM
     Indication: Product used for unknown indication
  124. DICLOFENAC SODIUM [Suspect]
     Active Substance: DICLOFENAC SODIUM
  125. DIPHENHYDRAMINE HYDROCHLORIDE [Suspect]
     Active Substance: DIPHENHYDRAMINE HYDROCHLORIDE
     Indication: Product used for unknown indication
  126. DESOXIMETASONE [Suspect]
     Active Substance: DESOXIMETASONE
     Indication: Rheumatoid arthritis
  127. DESOXIMETASONE [Suspect]
     Active Substance: DESOXIMETASONE
  128. DESOXIMETASONE [Suspect]
     Active Substance: DESOXIMETASONE
  129. DESOXIMETASONE [Suspect]
     Active Substance: DESOXIMETASONE
  130. DESOXIMETASONE [Suspect]
     Active Substance: DESOXIMETASONE
  131. GOLIMUMAB [Suspect]
     Active Substance: GOLIMUMAB
     Indication: Product used for unknown indication
  132. FOSAMAX [Suspect]
     Active Substance: ALENDRONATE SODIUM
     Indication: Rheumatoid arthritis
  133. FOSAMAX [Suspect]
     Active Substance: ALENDRONATE SODIUM
  134. FOSAMAX [Suspect]
     Active Substance: ALENDRONATE SODIUM
  135. HUMIRA [Suspect]
     Active Substance: ADALIMUMAB
     Indication: Rheumatoid arthritis
  136. HUMIRA [Suspect]
     Active Substance: ADALIMUMAB
  137. HUMIRA [Suspect]
     Active Substance: ADALIMUMAB
  138. HUMIRA [Suspect]
     Active Substance: ADALIMUMAB
  139. HYDROXYCHLOROQUINE [Suspect]
     Active Substance: HYDROXYCHLOROQUINE
     Indication: Product used for unknown indication
  140. HYDROXYCHLOROQUINE SULFATE [Suspect]
     Active Substance: HYDROXYCHLOROQUINE SULFATE
     Indication: Rheumatoid arthritis
  141. HYDROXYCHLOROQUINE SULFATE [Suspect]
     Active Substance: HYDROXYCHLOROQUINE SULFATE
  142. HYDROXYCHLOROQUINE SULFATE [Suspect]
     Active Substance: HYDROXYCHLOROQUINE SULFATE
  143. KEVZARA [Suspect]
     Active Substance: SARILUMAB
     Indication: Rheumatoid arthritis
  144. KEVZARA [Suspect]
     Active Substance: SARILUMAB
  145. LEFLUNOMIDE [Suspect]
     Active Substance: LEFLUNOMIDE
     Indication: Rheumatoid arthritis
  146. LEFLUNOMIDE [Suspect]
     Active Substance: LEFLUNOMIDE
  147. LEFLUNOMIDE [Suspect]
     Active Substance: LEFLUNOMIDE
  148. ORENCIA [Suspect]
     Active Substance: ABATACEPT
     Indication: Rheumatoid arthritis
  149. ORENCIA [Suspect]
     Active Substance: ABATACEPT
  150. ORENCIA [Suspect]
     Active Substance: ABATACEPT
  151. ORENCIA [Suspect]
     Active Substance: ABATACEPT
  152. PHTHALYLSULFATHIAZOLE [Suspect]
     Active Substance: PHTHALYLSULFATHIAZOLE
     Indication: Rheumatoid arthritis
  153. PHTHALYLSULFATHIAZOLE [Suspect]
     Active Substance: PHTHALYLSULFATHIAZOLE
  154. PREDNISONE [Suspect]
     Active Substance: PREDNISONE
     Indication: Product used for unknown indication
  155. PREDNISONE [Suspect]
     Active Substance: PREDNISONE
  156. PSEUDOEPHEDRINE HYDROCHLORIDE [Suspect]
     Active Substance: PSEUDOEPHEDRINE HYDROCHLORIDE
     Indication: Rheumatoid arthritis
  157. REMICADE [Suspect]
     Active Substance: INFLIXIMAB
     Indication: Rheumatoid arthritis
  158. REMICADE [Suspect]
     Active Substance: INFLIXIMAB
     Indication: Colitis ulcerative
  159. REMICADE [Suspect]
     Active Substance: INFLIXIMAB
  160. REMICADE [Suspect]
     Active Substance: INFLIXIMAB
  161. REMICADE [Suspect]
     Active Substance: INFLIXIMAB
  162. REMICADE [Suspect]
     Active Substance: INFLIXIMAB
  163. SIMPONI [Suspect]
     Active Substance: GOLIMUMAB
     Indication: Rheumatoid arthritis
  164. SIMPONI [Suspect]
     Active Substance: GOLIMUMAB
  165. SIMPONI [Suspect]
     Active Substance: GOLIMUMAB
  166. STELARA [Suspect]
     Active Substance: USTEKINUMAB
     Indication: Rheumatoid arthritis
  167. STELARA [Suspect]
     Active Substance: USTEKINUMAB
  168. TOCILIZUMAB [Suspect]
     Active Substance: TOCILIZUMAB
     Indication: Rheumatoid arthritis
  169. TOCILIZUMAB [Suspect]
     Active Substance: TOCILIZUMAB
  170. TOCILIZUMAB [Suspect]
     Active Substance: TOCILIZUMAB
  171. METHYLPREDNISOLONE SODIUM SUCCINATE [Suspect]
     Active Substance: METHYLPREDNISOLONE SODIUM SUCCINATE
     Indication: Product used for unknown indication
  172. ACETAMINOPHEN [Suspect]
     Active Substance: ACETAMINOPHEN
     Indication: Product used for unknown indication
  173. ACETAMINOPHEN [Suspect]
     Active Substance: ACETAMINOPHEN
     Indication: Product used for unknown indication
  174. ACETAMINOPHEN [Suspect]
     Active Substance: ACETAMINOPHEN
  175. OTEZLA [Suspect]
     Active Substance: APREMILAST
     Indication: Product used for unknown indication
  176. HYDROCORTISONE ACETATE [Suspect]
     Active Substance: HYDROCORTISONE ACETATE
     Indication: Product used for unknown indication
  177. HYDROCORTISONE ACETATE [Suspect]
     Active Substance: HYDROCORTISONE ACETATE
  178. CALCIUM GLUCONATE [Suspect]
     Active Substance: CALCIUM GLUCONATE
     Indication: Product used for unknown indication
  179. CALCIUM GLUCONATE [Suspect]
     Active Substance: CALCIUM GLUCONATE
  180. CETIRIZINE HYDROCHLORIDE AND PSEUDOEPHEDRINE HYDROCHLORIDE [Suspect]
     Active Substance: CETIRIZINE HYDROCHLORIDE\PSEUDOEPHEDRINE HYDROCHLORIDE
     Indication: Rheumatoid arthritis
  181. DIETARY SUPPLEMENT [Suspect]
     Active Substance: DIETARY SUPPLEMENT
     Indication: Product used for unknown indication
  182. PREDNISONE [Suspect]
     Active Substance: PREDNISONE
     Indication: Rheumatoid arthritis
  183. CALCIUM CARBONATE\CALCIUM GLUCONATE\CALCIUM LACTATE [Suspect]
     Active Substance: CALCIUM CARBONATE\CALCIUM GLUCONATE\CALCIUM LACTATE
     Indication: Product used for unknown indication
  184. CERTOLIZUMAB PEGOL [Suspect]
     Active Substance: CERTOLIZUMAB PEGOL
     Indication: Product used for unknown indication
  185. INFLIXIMAB [Suspect]
     Active Substance: INFLIXIMAB
     Indication: Colitis ulcerative
  186. INFLIXIMAB [Suspect]
     Active Substance: INFLIXIMAB
     Indication: Rheumatoid arthritis
  187. USTEKINUMAB [Suspect]
     Active Substance: USTEKINUMAB
     Indication: Rheumatoid arthritis
  188. VITAMIN D3 [Suspect]
     Active Substance: CHOLECALCIFEROL
     Indication: Product used for unknown indication
  189. VITAMIN D3 [Suspect]
     Active Substance: CHOLECALCIFEROL
  190. TOFACITINIB CITRATE [Suspect]
     Active Substance: TOFACITINIB CITRATE
     Indication: Rheumatoid arthritis
  191. RAMIPRIL [Suspect]
     Active Substance: RAMIPRIL
     Indication: Product used for unknown indication
  192. ASACOL [Suspect]
     Active Substance: MESALAMINE
     Indication: Rheumatoid arthritis
  193. ASACOL [Suspect]
     Active Substance: MESALAMINE
     Indication: Crohn^s disease
  194. DOXYCYCLINE HYDROCHLORIDE [Suspect]
     Active Substance: DOXYCYCLINE HYDROCHLORIDE
     Indication: Product used for unknown indication
  195. ERGOCALCIFEROL [Suspect]
     Active Substance: ERGOCALCIFEROL
     Indication: Product used for unknown indication
  196. ISOPROPYL ALCOHOL [Suspect]
     Active Substance: ISOPROPYL ALCOHOL
     Indication: Product used for unknown indication
  197. LEVOCETIRIZINE [Suspect]
     Active Substance: LEVOCETIRIZINE
     Indication: Rheumatoid arthritis
  198. MINOCYCLINE [Suspect]
     Active Substance: MINOCYCLINE HYDROCHLORIDE
     Indication: Product used for unknown indication
  199. MINOCYCLINE [Suspect]
     Active Substance: MINOCYCLINE HYDROCHLORIDE
  200. MINOCYCLINE HYDROCHLORIDE [Suspect]
     Active Substance: MINOCYCLINE HYDROCHLORIDE
     Indication: Product used for unknown indication
  201. MORPHINE SULFATE [Suspect]
     Active Substance: MORPHINE SULFATE
     Indication: Product used for unknown indication
  202. OXYCODONE HYDROCHLORIDE [Suspect]
     Active Substance: OXYCODONE HYDROCHLORIDE
     Indication: Product used for unknown indication
  203. OXYCODONE TEREPHTHALATE [Suspect]
     Active Substance: OXYCODONE TEREPHTHALATE
     Indication: Product used for unknown indication
  204. PHENYLEPHRINE HYDROCHLORIDE [Suspect]
     Active Substance: PHENYLEPHRINE HYDROCHLORIDE
     Indication: Rheumatoid arthritis
  205. SIRUKUMAB [Suspect]
     Active Substance: SIRUKUMAB
     Indication: Product used for unknown indication
  206. TUMS [Suspect]
     Active Substance: CALCIUM CARBONATE
     Indication: Product used for unknown indication
  207. VITAMIN C [Suspect]
     Active Substance: ASCORBIC ACID
     Indication: Product used for unknown indication
  208. ADVIL [Suspect]
     Active Substance: IBUPROFEN
     Indication: Product use in unapproved indication
  209. CAFFEINE CITRATE [Concomitant]
     Active Substance: CAFFEINE CITRATE
  210. CODEINE [Concomitant]
     Active Substance: CODEINE
  211. IBUPROFEN [Concomitant]
     Active Substance: IBUPROFEN
  212. LISINOPRIL [Concomitant]
     Active Substance: LISINOPRIL
  213. LISINOPRIL [Concomitant]
     Active Substance: LISINOPRIL
  214. SULFASALAZINE [Concomitant]
     Active Substance: SULFASALAZINE
     Indication: Rheumatoid arthritis
  215. SULFASALAZINE [Concomitant]
     Active Substance: SULFASALAZINE
  216. PANTOPRAZOLE [Concomitant]
     Active Substance: PANTOPRAZOLE
  217. QUETIAPINE FUMARATE [Concomitant]
     Active Substance: QUETIAPINE FUMARATE
  218. ACETAMINOPHEN\CODEINE PHOSPHATE [Concomitant]
     Active Substance: ACETAMINOPHEN\CODEINE PHOSPHATE
  219. BUPROPION [Concomitant]
     Active Substance: BUPROPION
  220. WELLBUTRIN [Concomitant]
     Active Substance: BUPROPION HYDROCHLORIDE
  221. DOCONEXENT [Concomitant]
     Active Substance: DOCONEXENT
  222. HYDROMORPHONE HYDROCHLORIDE [Concomitant]
     Active Substance: HYDROMORPHONE HYDROCHLORIDE
  223. LANSOPRAZOLE [Concomitant]
     Active Substance: LANSOPRAZOLE
  224. LORAZEPAM [Concomitant]
     Active Substance: LORAZEPAM
  225. PANTOPRAZOLE SODIUM [Concomitant]
     Active Substance: PANTOPRAZOLE SODIUM
  226. TYLENOL [Concomitant]
     Active Substance: ACETAMINOPHEN

REACTIONS (87)
  - Drug intolerance [Fatal]
  - Off label use [Fatal]
  - Maternal exposure during pregnancy [Fatal]
  - Exposure during pregnancy [Fatal]
  - Abdominal discomfort [Fatal]
  - Alopecia [Fatal]
  - Anti-cyclic citrullinated peptide antibody positive [Fatal]
  - Arthralgia [Fatal]
  - Arthropathy [Fatal]
  - Blister [Fatal]
  - Blood cholesterol increased [Fatal]
  - Diarrhoea [Fatal]
  - Discomfort [Fatal]
  - Duodenal ulcer perforation [Fatal]
  - Fatigue [Fatal]
  - Fibromyalgia [Fatal]
  - General physical health deterioration [Fatal]
  - Glossodynia [Fatal]
  - Hand deformity [Fatal]
  - Headache [Fatal]
  - Hepatic enzyme increased [Fatal]
  - Hypercholesterolaemia [Fatal]
  - Hypersensitivity [Fatal]
  - Hypertension [Fatal]
  - Injury [Fatal]
  - Joint swelling [Fatal]
  - Malaise [Fatal]
  - Pain [Fatal]
  - Pemphigus [Fatal]
  - Pericarditis [Fatal]
  - Rash [Fatal]
  - Gait inability [Fatal]
  - Gastrointestinal disorder [Fatal]
  - Grip strength decreased [Fatal]
  - Ill-defined disorder [Fatal]
  - Impaired healing [Fatal]
  - Inflammation [Fatal]
  - Insomnia [Fatal]
  - Irritable bowel syndrome [Fatal]
  - Joint range of motion decreased [Fatal]
  - Lip dry [Fatal]
  - Liver disorder [Fatal]
  - Liver function test increased [Fatal]
  - Lower limb fracture [Fatal]
  - Lower respiratory tract infection [Fatal]
  - Lung disorder [Fatal]
  - Memory impairment [Fatal]
  - Migraine [Fatal]
  - Muscle injury [Fatal]
  - Muscle spasms [Fatal]
  - Muscle spasticity [Fatal]
  - Muscular weakness [Fatal]
  - Musculoskeletal pain [Fatal]
  - Nasopharyngitis [Fatal]
  - Night sweats [Fatal]
  - Medication error [Unknown]
  - Decreased appetite [Fatal]
  - Drug ineffective [Fatal]
  - Helicobacter infection [Fatal]
  - Hypoaesthesia [Fatal]
  - Liver injury [Fatal]
  - Mobility decreased [Fatal]
  - Musculoskeletal stiffness [Fatal]
  - Psoriatic arthropathy [Fatal]
  - Rheumatic fever [Fatal]
  - Rheumatoid arthritis [Fatal]
  - Rheumatoid factor positive [Fatal]
  - Systemic lupus erythematosus [Fatal]
  - Therapeutic product effect decreased [Fatal]
  - Treatment failure [Fatal]
  - Type 2 diabetes mellitus [Fatal]
  - Wound [Fatal]
  - Contraindicated product administered [Fatal]
  - Swelling [Fatal]
  - Anxiety [Not Recovered/Not Resolved]
  - Asthma [Not Recovered/Not Resolved]
  - Lupus vulgaris [Not Recovered/Not Resolved]
  - Musculoskeletal stiffness [Not Recovered/Not Resolved]
  - Oedema peripheral [Not Recovered/Not Resolved]
  - Pain in extremity [Not Recovered/Not Resolved]
  - Red blood cell sedimentation rate increased [Not Recovered/Not Resolved]
  - Retinitis [Not Recovered/Not Resolved]
  - Therapeutic product effect incomplete [Not Recovered/Not Resolved]
  - Visual impairment [Not Recovered/Not Resolved]
  - Arthritis [Fatal]
  - Inappropriate schedule of product administration [Unknown]
  - Overdose [Unknown]
